FAERS Safety Report 8051367-7 (Version None)
Quarter: 2012Q1

REPORT INFORMATION
  Report Type: 
  Country: None (occurrence: None)
  Receive Date: 20120117
  Receipt Date: 20120105
  Transmission Date: 20120608
  Serious: Yes (Other)
  Sender: FDA-Public Use
  Company Number: BR-ASTRAZENECA-2012SE01424

PATIENT
  Age: 73 Year
  Sex: Female

DRUGS (2)
  1. ATACAND [Suspect]
     Indication: HYPERTENSION
     Route: 048
     Dates: end: 20111201
  2. ATACAND [Suspect]
     Route: 048
     Dates: start: 20120105

REACTIONS (2)
  - CEREBROVASCULAR ACCIDENT [None]
  - WRONG DRUG ADMINISTERED [None]
